FAERS Safety Report 8186415-7 (Version None)
Quarter: 2012Q1

REPORT INFORMATION
  Report Type: 
  Country: None (occurrence: None)
  Receive Date: 20120302
  Receipt Date: 20120302
  Transmission Date: 20120608
  Serious: Yes (Hospitalization)
  Sender: FDA-Public Use
  Company Number: None

PATIENT
  Age: 72 Year
  Sex: Male
  Weight: 98.6 kg

DRUGS (1)
  1. IMMUNE GLOBULIN (HUMAN) [Suspect]
     Indication: MYASTHENIA GRAVIS
     Dosage: 100 GM EVERY DAY IV
     Route: 042
     Dates: start: 20120202, end: 20120202

REACTIONS (4)
  - URTICARIA [None]
  - RASH [None]
  - PRURITUS [None]
  - HYPERSENSITIVITY [None]
